FAERS Safety Report 8456585-1 (Version None)
Quarter: 2012Q2

REPORT INFORMATION
  Report Type: 
  Country: None (occurrence: None)
  Receive Date: 20120621
  Receipt Date: 20120614
  Transmission Date: 20120825
  Serious: Yes (Hospitalization)
  Sender: FDA-Public Use
  Company Number: FR-MERCK-1206USA02824

PATIENT
  Age: 71 Year
  Sex: Male

DRUGS (11)
  1. ZOFRAN [Suspect]
     Route: 048
     Dates: start: 20120322, end: 20120325
  2. OXYCODONE HCL [Suspect]
     Route: 048
     Dates: start: 20120307, end: 20120322
  3. ISOPTIN [Concomitant]
     Route: 065
  4. VERAPAMIL HCL [Suspect]
     Route: 048
     Dates: start: 20120109, end: 20120325
  5. EMEND [Suspect]
     Route: 048
     Dates: start: 20120322, end: 20120325
  6. CISPLATIN [Suspect]
     Indication: LUNG SQUAMOUS CELL CARCINOMA METASTATIC
     Route: 042
     Dates: start: 20120322, end: 20120322
  7. TAXOTERE [Suspect]
     Indication: LUNG SQUAMOUS CELL CARCINOMA METASTATIC
     Route: 042
     Dates: start: 20120322, end: 20120322
  8. DOMPERIDONE [Suspect]
     Route: 048
     Dates: start: 20120201, end: 20120330
  9. PREDNISOLONE [Suspect]
     Route: 065
     Dates: start: 20120321, end: 20120325
  10. CORDARONE [Concomitant]
     Route: 048
  11. POTASSIUM CHLORIDE [Concomitant]
     Route: 048

REACTIONS (1)
  - PANCREATITIS ACUTE [None]
